FAERS Safety Report 20902766 (Version 1)
Quarter: 2022Q2

REPORT INFORMATION
  Report Type: Spontaneous
  Country: US (occurrence: US)
  Receive Date: 20220601
  Receipt Date: 20220601
  Transmission Date: 20220720
  Serious: Yes (Other)
  Sender: FDA-Public Use
  Company Number: US-drreddys-SPO/USA/22/0150514

PATIENT
  Age: 17 Year

DRUGS (1)
  1. ACCUTANE [Suspect]
     Active Substance: ISOTRETINOIN
     Indication: Product used for unknown indication
     Dosage: RMA ISSUE DATE: 06 JANUARY 2022 08:07:33 PM, 17 FEBRUARY 2022 01:24:55 PM, 18 FEBRUARY 2022 01:47:05

REACTIONS (1)
  - Mood swings [Unknown]
